FAERS Safety Report 11153595 (Version 1)
Quarter: 2015Q2

REPORT INFORMATION
  Report Type: Spontaneous
  Country: IT (occurrence: IT)
  Receive Date: 20150602
  Receipt Date: 20150602
  Transmission Date: 20150821
  Serious: Yes (Hospitalization)
  Sender: FDA-Public Use
  Company Number: IT-RANBAXY-2014R1-84973

PATIENT
  Age: 53 Year
  Sex: Female

DRUGS (5)
  1. SULFASALAZINE. [Interacting]
     Active Substance: SULFASALAZINE
     Indication: IRIDOCYCLITIS
  2. SULFASALAZINE. [Interacting]
     Active Substance: SULFASALAZINE
     Indication: SERONEGATIVE ARTHRITIS
     Dosage: 2 G, DAILY
     Route: 065
  3. AMOXICILLIN/CLAVULANATE [Suspect]
     Active Substance: AMOXICILLIN\CLAVULANATE POTASSIUM
     Indication: OROPHARYNGEAL PAIN
     Dosage: UNK
     Route: 065
  4. AMOXICILLIN/CLAVULANATE [Interacting]
     Active Substance: AMOXICILLIN\CLAVULANATE POTASSIUM
     Indication: PYREXIA
  5. AMOXICILLIN/CLAVULANATE [Interacting]
     Active Substance: AMOXICILLIN\CLAVULANATE POTASSIUM
     Indication: LYMPHADENOPATHY

REACTIONS (2)
  - Drug reaction with eosinophilia and systemic symptoms [Recovered/Resolved]
  - Drug interaction [Recovered/Resolved]
